FAERS Safety Report 8811568 (Version 2)
Quarter: 2012Q4

REPORT INFORMATION
  Report Type: Spontaneous
  Country: US (occurrence: None)
  Receive Date: 20120921
  Receipt Date: 20120927
  Transmission Date: 20130627
  Serious: Yes (Other)
  Sender: FDA-Public Use
  Company Number: CIO12016975

PATIENT
  Age: 28 Year
  Sex: Male
  Weight: 99.8 kg

DRUGS (1)
  1. NYQUIL (PSEUDOEPHEDRINE) [Suspect]
     Dosage: 1 capful once only, Oral
     Route: 048
     Dates: start: 20120905, end: 20120905

REACTIONS (5)
  - Hypersensitivity [None]
  - Pharyngeal oedema [None]
  - Throat tightness [None]
  - Dyspnoea [None]
  - Malaise [None]
